FAERS Safety Report 6476185-2 (Version None)
Quarter: 2009Q4

REPORT INFORMATION
  Report Type: 
  Country: None (occurrence: None)
  Receive Date: 20091205
  Receipt Date: 20071229
  Transmission Date: 20100525
  Serious: Yes (Hospitalization, Other)
  Sender: FDA-Public Use
  Company Number: US-JNJCH-2007336805

PATIENT
  Sex: Female

DRUGS (20)
  1. ZYRTEC [Suspect]
     Indication: DRUG HYPERSENSITIVITY
     Route: 065
  2. CHANTIX [Suspect]
     Indication: SMOKING CESSATION THERAPY
     Route: 065
     Dates: start: 20070729, end: 20070101
  3. LISINOPRIL [Suspect]
     Indication: HYPERTENSION
     Route: 065
     Dates: start: 20070701, end: 20071001
  4. SULFASALAZINE [Suspect]
     Route: 065
  5. REMICADE [Suspect]
     Route: 065
  6. MINOCYCLINE HCL [Suspect]
     Route: 065
  7. NEXIUM [Concomitant]
     Route: 065
  8. SEROQUEL [Concomitant]
     Route: 065
  9. AMBIEN [Concomitant]
     Route: 065
  10. LESCOL XL [Concomitant]
     Route: 065
  11. FUROSEMIDE [Concomitant]
     Route: 065
  12. MONTELUKAST SODIUM [Concomitant]
     Route: 065
  13. PREDNISONE [Concomitant]
     Route: 065
  14. REQUIP [Concomitant]
     Route: 065
  15. ZETIA [Concomitant]
     Route: 065
  16. ALLEGRA D 24 HOUR [Concomitant]
     Route: 065
  17. FLONASE [Concomitant]
     Route: 065
  18. IRON [Concomitant]
     Route: 065
  19. PERCOCET [Concomitant]
     Dosage: TEXT:10/325
     Route: 065
  20. ALBUTEROL [Concomitant]
     Route: 065

REACTIONS (9)
  - BLOOD DISORDER [None]
  - CHEST DISCOMFORT [None]
  - DYSPNOEA [None]
  - HYPOTENSION [None]
  - KNEE OPERATION [None]
  - PANCREATITIS [None]
  - PRURITUS [None]
  - RASH [None]
  - SKIN EXFOLIATION [None]
